FAERS Safety Report 11473660 (Version 1)
Quarter: 2015Q3

REPORT INFORMATION
  Report Type: Spontaneous
  Country: US (occurrence: None)
  Receive Date: 20150908
  Receipt Date: 20150908
  Transmission Date: 20151125
  Serious: Yes (Hospitalization)
  Sender: FDA-Public Use
  Company Number: None

PATIENT
  Age: 64 Year
  Sex: Male
  Weight: 66 kg

DRUGS (1)
  1. CYTARABINE. [Suspect]
     Active Substance: CYTARABINE
     Dates: end: 20150614

REACTIONS (11)
  - Multiple-drug resistance [None]
  - Bacterial infection [None]
  - Productive cough [None]
  - Platelet count decreased [None]
  - Dizziness [None]
  - Sepsis [None]
  - Salivary gland pain [None]
  - Febrile neutropenia [None]
  - White blood cell count decreased [None]
  - Vomiting [None]
  - Haemoglobin decreased [None]

NARRATIVE: CASE EVENT DATE: 20150619
